FAERS Safety Report 8976838 (Version 1)
Quarter: 2012Q4

REPORT INFORMATION
  Report Type: Report from Study
  Country: DK (occurrence: JP)
  Receive Date: 20121219
  Receipt Date: 20121219
  Transmission Date: 20130627
  Serious: Yes (Hospitalization)
  Sender: FDA-Public Use
  Company Number: JP-FRI-1000041102

PATIENT
  Age: 65 Year
  Sex: Male
  Weight: 57.5 kg

DRUGS (7)
  1. ESCITALOPRAM [Suspect]
     Indication: DEPRESSION
     Dosage: 10mg
     Route: 048
     Dates: start: 20120622, end: 20121018
  2. MEILAX [Concomitant]
     Indication: DEPRESSION
     Route: 048
  3. HALCION [Concomitant]
     Indication: DEPRESSION
     Route: 048
  4. HIRNAMIN [Concomitant]
     Indication: DEPRESSION
     Route: 048
  5. MUCOSTA [Concomitant]
     Indication: GASTRITIS
     Route: 048
  6. CRESTOR [Concomitant]
     Indication: HYPERLIPIDAEMIA
     Route: 048
  7. MAINTATE [Concomitant]
     Indication: HYPERTENSION
     Route: 048

REACTIONS (2)
  - Benign prostatic hyperplasia [Recovered/Resolved]
  - Condition aggravated [Recovered/Resolved]
